FAERS Safety Report 18155962 (Version 1)
Quarter: 2020Q3

REPORT INFORMATION
  Report Type: Spontaneous
  Country: CN (occurrence: CN)
  Receive Date: 20200817
  Receipt Date: 20200817
  Transmission Date: 20201103
  Serious: Yes (Hospitalization)
  Sender: FDA-Public Use
  Company Number: CN-ENDO PHARMACEUTICALS INC-2020-005391

PATIENT
  Age: 40 Year
  Sex: Female

DRUGS (2)
  1. VASOSTRICT [Suspect]
     Active Substance: VASOPRESSIN
     Indication: HAEMORRHAGE PROPHYLAXIS
     Dosage: 10 ML OF A 0.6 U/ML
     Route: 015
  2. ANESTHETICS [Concomitant]
     Active Substance: UNSPECIFIED INGREDIENT
     Indication: INDUCTION OF ANAESTHESIA

REACTIONS (2)
  - Off label use [Recovered/Resolved]
  - Cardiac arrest [Recovered/Resolved]
